FAERS Safety Report 5825407-7 (Version None)
Quarter: 2008Q3

REPORT INFORMATION
  Report Type: 
  Country: None (occurrence: None)
  Receive Date: 20080723
  Receipt Date: 20080716
  Transmission Date: 20090109
  Serious: Yes (Other)
  Sender: FDA-Public Use
  Company Number: 200804021

PATIENT
  Age: 53 Year
  Sex: Male
  Weight: 136 kg

DRUGS (9)
  1. TESTIM [Suspect]
     Indication: BLOOD TESTOSTERONE DECREASED
     Dosage: TRANSDERMAL
     Route: 062
  2. TESTIM [Suspect]
     Indication: HYPOGONADISM
     Dosage: TRANSDERMAL
     Route: 062
  3. ANDROGEL [Suspect]
     Indication: BLOOD TESTOSTERONE DECREASED
     Dosage: 5.0 GRAMS, DAILY VIA PUMP, CUTANEOUS, 7.5 GRAMS, DAILY VIA PUMP, CUTANEOUS,
     Route: 003
     Dates: start: 20070401, end: 20070701
  4. ANDROGEL [Suspect]
     Indication: BLOOD TESTOSTERONE DECREASED
     Dosage: 5.0 GRAMS, DAILY VIA PUMP, CUTANEOUS, 7.5 GRAMS, DAILY VIA PUMP, CUTANEOUS,
     Route: 003
     Dates: start: 20070701, end: 20080401
  5. ANDROGEL [Suspect]
     Indication: BLOOD TESTOSTERONE DECREASED
     Dosage: 5.0 GRAMS, DAILY VIA PUMP, CUTANEOUS, 7.5 GRAMS, DAILY VIA PUMP, CUTANEOUS,
     Route: 003
     Dates: start: 20080401
  6. ANDRODERM [Suspect]
     Indication: BLOOD TESTOSTERONE DECREASED
  7. BENICAR [Concomitant]
  8. LEVITRA [Concomitant]
  9. SYNTHROID [Concomitant]

REACTIONS (3)
  - CONDITION AGGRAVATED [None]
  - ERECTILE DYSFUNCTION [None]
  - PITUITARY TUMOUR RECURRENT [None]
